FAERS Safety Report 6097846-3 (Version None)
Quarter: 2009Q1

REPORT INFORMATION
  Report Type: 
  Country: None (occurrence: None)
  Receive Date: 20090225
  Receipt Date: 20090211
  Transmission Date: 20090719
  Serious: Yes (Hospitalization)
  Sender: FDA-Public Use
  Company Number: 2009AL000907

PATIENT
  Age: 85 Year
  Sex: Male

DRUGS (4)
  1. DICLOFENAC SODIUM [Suspect]
     Indication: GOUT
     Dosage: 50 MG; PO
     Route: 048
     Dates: start: 20080101, end: 20090101
  2. AMOXICILLIN [Concomitant]
  3. CO-AMILOFRUSE [Concomitant]
  4. NITRAZEPAM [Concomitant]

REACTIONS (2)
  - DUODENAL ULCER HAEMORRHAGE [None]
  - UPPER GASTROINTESTINAL HAEMORRHAGE [None]
